FAERS Safety Report 17501143 (Version 1)
Quarter: 2020Q1

REPORT INFORMATION
  Report Type: Spontaneous
  Country: US (occurrence: US)
  Receive Date: 20200305
  Receipt Date: 20200305
  Transmission Date: 20200409
  Serious: Yes (Hospitalization, Other)
  Sender: FDA-Public Use
  Company Number: US-DRREDDYS-USA/USA/20/0120375

PATIENT
  Age: 14 Year
  Sex: Male

DRUGS (7)
  1. SODIUM BICARBONATE. [Suspect]
     Active Substance: SODIUM BICARBONATE
     Dosage: BOLUSES OF 1 MEQ/KG
  2. ARIPIPRAZOLE. [Suspect]
     Active Substance: ARIPIPRAZOLE
     Indication: DEPRESSION
  3. CITALOPRAM [Suspect]
     Active Substance: CITALOPRAM HYDROBROMIDE
     Indication: DEPRESSION
  4. SODIUM BICARBONATE. [Suspect]
     Active Substance: SODIUM BICARBONATE
     Indication: OVERDOSE
     Dosage: BOLUSES OF 1 MEQ/KG
     Route: 065
  5. CITALOPRAM [Suspect]
     Active Substance: CITALOPRAM HYDROBROMIDE
     Indication: ANXIETY
     Route: 048
  6. ARIPIPRAZOLE. [Suspect]
     Active Substance: ARIPIPRAZOLE
     Indication: ANXIETY
     Route: 048
  7. SODIUM BICARBONATE. [Suspect]
     Active Substance: SODIUM BICARBONATE
     Dosage: 150 MEQ DILUTED IN 1L OF DEXTROSE 5% IN WATER AT 1.5-2 TIMES MAINTENANCE

REACTIONS (10)
  - Hypomagnesaemia [Unknown]
  - Hypokalaemia [Unknown]
  - Intentional overdose [Unknown]
  - Sinus tachycardia [Unknown]
  - Somnolence [Unknown]
  - Electrocardiogram QT prolonged [Unknown]
  - Bundle branch block left [Unknown]
  - Dystonia [Recovered/Resolved]
  - Hypocalcaemia [Unknown]
  - Intentional product misuse [Unknown]
